FAERS Safety Report 10334126 (Version 1)
Quarter: 2014Q3

REPORT INFORMATION
  Report Type: Spontaneous
  Country: DE (occurrence: None)
  Receive Date: 20140721
  Receipt Date: 20140721
  Transmission Date: 20150326
  Serious: Yes (Other)
  Sender: FDA-Public Use
  Company Number: DE-SEPTODONT-201402082

PATIENT
  Age: 39 Year
  Sex: Male

DRUGS (1)
  1. SEPTANEST [Suspect]
     Active Substance: ARTICAINE HYDROCHLORIDE\EPINEPHRINE BITARTRATE
     Indication: LOCAL ANAESTHESIA
     Dosage: DF DENTAL
     Route: 004

REACTIONS (8)
  - Erythema [None]
  - Paraesthesia [None]
  - Restlessness [None]
  - Visual acuity reduced [None]
  - Pulse abnormal [None]
  - Tearfulness [None]
  - Pallor [None]
  - Sneezing [None]

NARRATIVE: CASE EVENT DATE: 20140107
